FAERS Safety Report 17675337 (Version 1)
Quarter: 2020Q2

REPORT INFORMATION
  Report Type: Spontaneous
  Country: US (occurrence: US)
  Receive Date: 20200415
  Receipt Date: 20200415
  Transmission Date: 20200714
  Serious: No
  Sender: FDA-Public Use
  Company Number: None

PATIENT
  Sex: Female

DRUGS (2)
  1. IMFINZI [Suspect]
     Active Substance: DURVALUMAB
     Indication: LUNG NEOPLASM MALIGNANT
     Dosage: ?          OTHER FREQUENCY:DAY 1 EVERY 2 WEEK;?
     Route: 042
     Dates: start: 20200325
  2. IMFINZI [Suspect]
     Active Substance: DURVALUMAB
     Indication: LUNG NEOPLASM MALIGNANT
     Dosage: ?          OTHER FREQUENCY:DAY 1 EVERY 2 WEEK;?
     Route: 042
     Dates: start: 20200325

REACTIONS (1)
  - Pneumonia [None]
